FAERS Safety Report 6880281-5 (Version None)
Quarter: 2010Q3

REPORT INFORMATION
  Report Type: 
  Country: None (occurrence: None)
  Receive Date: 20100728
  Receipt Date: 20100428
  Transmission Date: 20110219
  Serious: No
  Sender: FDA-Public Use
  Company Number: US-BRISTOL-MYERS SQUIBB COMPANY-15047202

PATIENT
  Age: 72 Year
  Sex: Female
  Weight: 91 kg

DRUGS (1)
  1. GLUCOVANCE [Suspect]
     Indication: DIABETES MELLITUS
     Dosage: 1DF-2.5MG/500MG
     Dates: start: 20100301

REACTIONS (1)
  - NAUSEA [None]
